FAERS Safety Report 11154907 (Version 2)
Quarter: 2015Q2

REPORT INFORMATION
  Report Type: Spontaneous
  Country: MA (occurrence: MA)
  Receive Date: 20150602
  Receipt Date: 20150610
  Transmission Date: 20150821
  Serious: Yes (Life-Threatening)
  Sender: FDA-Public Use
  Company Number: PHHY2015MA063781

PATIENT
  Age: 27 Year
  Sex: Female

DRUGS (1)
  1. ETHAMBUTOL DIHYDROCHLORIDE,ISONIAZID,PYRAZINAMIDE,RIFAMPICIN [Suspect]
     Active Substance: ETHAMBUTOL HYDROCHLORIDE\ISONIAZID\PYRAZINAMIDE\RIFAMPIN
     Indication: EXTRAPULMONARY TUBERCULOSIS
     Dosage: 4 DF, QD
     Route: 065

REACTIONS (8)
  - Lymphadenopathy [Unknown]
  - Skin lesion [Recovered/Resolved]
  - Hepatocellular injury [Recovering/Resolving]
  - Eosinophilia [Recovering/Resolving]
  - Drug reaction with eosinophilia and systemic symptoms [Recovering/Resolving]
  - Face oedema [Unknown]
  - Pyrexia [Unknown]
  - Rash [Unknown]
